FAERS Safety Report 23416353 (Version 1)
Quarter: 2024Q1

REPORT INFORMATION
  Report Type: Spontaneous
  Country: US (occurrence: None)
  Receive Date: 20240117
  Receipt Date: 20240117
  Transmission Date: 20240410
  Serious: Yes (Life-Threatening, Hospitalization)
  Sender: FDA-Public Use
  Company Number: None

PATIENT
  Age: 48 Year
  Sex: Female
  Weight: 73 kg

DRUGS (2)
  1. OCREVUS [Suspect]
     Active Substance: OCRELIZUMAB
     Indication: Multiple sclerosis
     Dosage: OTHER FREQUENCY : EVERY 24 WEEKS;?
     Route: 041
     Dates: start: 20170501, end: 20230728
  2. OCREVUS [Concomitant]
     Active Substance: OCRELIZUMAB
     Dates: start: 20170501, end: 20230728

REACTIONS (9)
  - Pyrexia [None]
  - Chills [None]
  - Tachycardia [None]
  - Diarrhoea [None]
  - Abdominal pain lower [None]
  - Septic shock [None]
  - Hypogammaglobulinaemia [None]
  - Acute kidney injury [None]
  - Abdominal abscess [None]

NARRATIVE: CASE EVENT DATE: 20231011
